FAERS Safety Report 24727786 (Version 1)
Quarter: 2024Q4

REPORT INFORMATION
  Report Type: Spontaneous
  Country: US (occurrence: None)
  Receive Date: 20241212
  Receipt Date: 20241212
  Transmission Date: 20250115
  Serious: No
  Sender: Public
  Company Number: None

PATIENT
  Age: 69 Year
  Sex: Male

DRUGS (1)
  1. LISINOPRIL [Suspect]
     Active Substance: LISINOPRIL
     Indication: Hypertension
     Dates: start: 20230123, end: 20240215

REACTIONS (3)
  - Angioedema [None]
  - Paraesthesia [None]
  - Swelling face [None]

NARRATIVE: CASE EVENT DATE: 20240221
